FAERS Safety Report 12911689 (Version 1)
Quarter: 2016Q4

REPORT INFORMATION
  Report Type: Spontaneous
  Country: US (occurrence: US)
  Receive Date: 20161104
  Receipt Date: 20161104
  Transmission Date: 20170207
  Serious: Yes (Other)
  Sender: FDA-Public Use
  Company Number: US-UNITED THERAPEUTICS-UTC-039683

PATIENT
  Age: 47 Year
  Sex: Female
  Weight: 117.46 kg

DRUGS (3)
  1. REMODULIN [Suspect]
     Active Substance: TREPROSTINIL
     Indication: PULMONARY ARTERIAL HYPERTENSION
  2. REMODULIN [Suspect]
     Active Substance: TREPROSTINIL
     Indication: COR PULMONALE CHRONIC
     Dosage: 0.016 ?G/KG, CONTINUING
     Route: 041
     Dates: start: 20131016
  3. LETAIRIS [Concomitant]
     Active Substance: AMBRISENTAN
     Indication: PULMONARY ARTERIAL HYPERTENSION
     Dosage: UNK
     Dates: start: 20140301

REACTIONS (8)
  - Exercise tolerance decreased [Not Recovered/Not Resolved]
  - Diarrhoea [Recovered/Resolved]
  - Hypophagia [Recovering/Resolving]
  - Nausea [Recovered/Resolved]
  - Abasia [Recovering/Resolving]
  - Product use issue [Unknown]
  - Headache [Recovered/Resolved]
  - Weight decreased [Recovering/Resolving]

NARRATIVE: CASE EVENT DATE: 201310
